FAERS Safety Report 5551666-4 (Version None)
Quarter: 2007Q4

REPORT INFORMATION
  Report Type: 
  Country: None (occurrence: None)
  Receive Date: 20071212
  Receipt Date: 20071130
  Transmission Date: 20080405
  Serious: Yes (Hospitalization, Other)
  Sender: FDA-Public Use
  Company Number: FR-PFIZER INC-2007087603

PATIENT
  Sex: Male
  Weight: 80 kg

DRUGS (4)
  1. LYRICA [Suspect]
     Indication: POLYNEUROPATHY
     Route: 048
  2. LYRICA [Interacting]
     Indication: RADICULOPATHY
  3. METFORMIN HCL [Interacting]
     Indication: HYPERGLYCAEMIA
     Route: 048
     Dates: start: 20071006, end: 20070101
  4. COVERSUM COMBI [Concomitant]
     Route: 048

REACTIONS (10)
  - DRUG INTERACTION [None]
  - HYPERGLYCAEMIA [None]
  - OEDEMA [None]
  - PAIN [None]
  - PULMONARY EMBOLISM [None]
  - RENAL FAILURE [None]
  - SCIATICA [None]
  - TYPE 2 DIABETES MELLITUS [None]
  - VENOUS THROMBOSIS [None]
  - WEIGHT INCREASED [None]
